FAERS Safety Report 6410229-9 (Version None)
Quarter: 2009Q4

REPORT INFORMATION
  Report Type: 
  Country: None (occurrence: None)
  Receive Date: 20091022
  Receipt Date: 20091019
  Transmission Date: 20100525
  Serious: Yes (Hospitalization, Other)
  Sender: FDA-Public Use
  Company Number: PHHO2009US07531

PATIENT
  Sex: Male
  Weight: 99.7 kg

DRUGS (1)
  1. PTK 787A T35913+ [Suspect]
     Indication: MALIGNANT MELANOMA
     Dosage: 750MG BID
     Route: 048
     Dates: start: 20090504, end: 20090527

REACTIONS (19)
  - ASTHENIA [None]
  - ATRIAL FIBRILLATION [None]
  - ATRIAL FLUTTER [None]
  - BLOOD THYROID STIMULATING HORMONE INCREASED [None]
  - DYSPNOEA [None]
  - FATIGUE [None]
  - HAEMATURIA [None]
  - HYPERTENSION [None]
  - HYPOTENSION [None]
  - HYPOTHYROIDISM [None]
  - LEUKOPENIA [None]
  - LIVER FUNCTION TEST ABNORMAL [None]
  - MUCOSAL INFLAMMATION [None]
  - NAUSEA [None]
  - NEUROPATHY PERIPHERAL [None]
  - PYREXIA [None]
  - SINUS TACHYCARDIA [None]
  - SUPRAVENTRICULAR TACHYCARDIA [None]
  - THROMBOCYTOPENIA [None]
